FAERS Safety Report 20234666 (Version 1)
Quarter: 2021Q4

REPORT INFORMATION
  Report Type: Spontaneous
  Country: JP (occurrence: JP)
  Receive Date: 20211227
  Receipt Date: 20211227
  Transmission Date: 20220303
  Serious: Yes (Death, Hospitalization)
  Sender: FDA-Public Use
  Company Number: JP-JNJFOC-20211100730

PATIENT
  Age: 70 Year
  Sex: Male

DRUGS (1)
  1. STELARA [Suspect]
     Active Substance: USTEKINUMAB
     Indication: Psoriasis
     Dosage: DOSE UNKNOWN
     Route: 058
     Dates: start: 2015, end: 202109

REACTIONS (1)
  - Neuroendocrine carcinoma [Fatal]

NARRATIVE: CASE EVENT DATE: 20210101
